FAERS Safety Report 10219844 (Version 1)
Quarter: 2014Q2

REPORT INFORMATION
  Report Type: Spontaneous
  Country: US (occurrence: US)
  Receive Date: 20140605
  Receipt Date: 20140605
  Transmission Date: 20141212
  Serious: No
  Sender: FDA-Public Use
  Company Number: US-TEVA-486363USA

PATIENT
  Age: 25 Year
  Sex: Female
  Weight: 63.11 kg

DRUGS (2)
  1. PARAGARD 380A [Suspect]
     Indication: CONTRACEPTION
     Route: 015
     Dates: start: 20130806, end: 20140421
  2. PRENATAL VITAMINS [Concomitant]
     Indication: VITAMIN SUPPLEMENTATION

REACTIONS (2)
  - Vaginal haemorrhage [Recovered/Resolved]
  - Device expulsion [Recovered/Resolved]
